FAERS Safety Report 7825098-X (Version None)
Quarter: 2011Q4

REPORT INFORMATION
  Report Type: 
  Country: None (occurrence: None)
  Receive Date: 20111019
  Receipt Date: 20110225
  Transmission Date: 20120403
  Serious: No
  Sender: FDA-Public Use
  Company Number: US-BRISTOL-MYERS SQUIBB COMPANY-15100191

PATIENT
  Age: 70 Year
  Sex: Female

DRUGS (2)
  1. AVALIDE [Suspect]
     Dosage: TAKEN FOR 6 MONTHS DF=300/12.5MG
     Route: 048
     Dates: start: 20100924
  2. DIOVAN [Suspect]
     Dates: start: 20110221

REACTIONS (1)
  - DIZZINESS [None]
